FAERS Safety Report 6742091-9 (Version None)
Quarter: 2010Q2

REPORT INFORMATION
  Report Type: 
  Country: None (occurrence: None)
  Receive Date: 20100526
  Receipt Date: 20100514
  Transmission Date: 20101027
  Serious: Yes (Other)
  Sender: FDA-Public Use
  Company Number: PHHY2010JP13295

PATIENT
  Sex: Male
  Weight: 64 kg

DRUGS (7)
  1. DIOVAN [Suspect]
     Indication: HYPERTENSION
     Dosage: UNK
     Route: 048
     Dates: start: 20051102, end: 20100303
  2. LIPITOR [Concomitant]
     Indication: HYPERLIPIDAEMIA
     Dosage: 10 MG, UNK
     Route: 048
     Dates: start: 20050928
  3. PLAVIX [Concomitant]
     Indication: CEREBRAL INFARCTION
     Dosage: 75 MG, UNK
     Route: 048
     Dates: start: 20100303
  4. KETAS [Concomitant]
     Indication: CEREBRAL INFARCTION
     Dosage: 20 MG, UNK
     Route: 048
     Dates: start: 20050928
  5. OMEPRAL [Concomitant]
     Dosage: 10 MG, UNK
     Route: 048
     Dates: start: 20060508
  6. PROMAC [Concomitant]
     Dosage: 150 MG, UNK
     Route: 048
     Dates: start: 20060728
  7. PANALDINE [Concomitant]
     Indication: CEREBRAL INFARCTION
     Route: 048
     Dates: start: 20050928, end: 20100302

REACTIONS (2)
  - COUGH [None]
  - INTERSTITIAL LUNG DISEASE [None]
